FAERS Safety Report 13125177 (Version 3)
Quarter: 2017Q3

REPORT INFORMATION
  Report Type: Spontaneous
  Country: KR (occurrence: KR)
  Receive Date: 20170118
  Receipt Date: 20170712
  Transmission Date: 20171127
  Serious: Yes (Hospitalization, Other)
  Sender: FDA-Public Use
  Company Number: KR-009507513-1701KOR006839

PATIENT
  Age: 60 Year
  Sex: Male
  Weight: 65 kg

DRUGS (25)
  1. EMEND (FOSAPREPITANT DIMEGLUMINE) [Suspect]
     Active Substance: FOSAPREPITANT DIMEGLUMINE
     Indication: PROPHYLAXIS OF NAUSEA AND VOMITING
     Dosage: 150 MG, ONCE
     Route: 042
     Dates: start: 20160608, end: 20160608
  2. DEXAMETHASONE SODIUM PHOSPHATE. [Concomitant]
     Active Substance: DEXAMETHASONE SODIUM PHOSPHATE
     Dosage: 8 MG, BID; STRENGHT: 5 MG/ML
     Route: 042
     Dates: start: 20160723, end: 20160723
  3. DEXAMETHASONE. [Concomitant]
     Active Substance: DEXAMETHASONE
     Dosage: 8 MG, ONCE
     Route: 048
     Dates: start: 20160723, end: 20160723
  4. EMEND (FOSAPREPITANT DIMEGLUMINE) [Suspect]
     Active Substance: FOSAPREPITANT DIMEGLUMINE
     Dosage: 150 MG, ONCE
     Route: 042
     Dates: start: 20160629, end: 20160629
  5. CISPLAN [Concomitant]
     Active Substance: CISPLATIN
     Dosage: 96.2 MG, ONCE, STRENGHT: 50MG/100ML
     Route: 042
     Dates: start: 20160629, end: 20160629
  6. DEXAMETHASONE SODIUM PHOSPHATE. [Concomitant]
     Active Substance: DEXAMETHASONE SODIUM PHOSPHATE
     Dosage: 12 MG, ONCE; STRENGHT: 5 MG/ML
     Route: 042
     Dates: start: 20160720, end: 20160720
  7. DEXAMETHASONE SODIUM PHOSPHATE. [Concomitant]
     Active Substance: DEXAMETHASONE SODIUM PHOSPHATE
     Dosage: 12 MG, ONCE; STRENGHT: 5 MG/ML
     Route: 042
     Dates: start: 20160629, end: 20160629
  8. DEXAMETHASONE SODIUM PHOSPHATE. [Concomitant]
     Active Substance: DEXAMETHASONE SODIUM PHOSPHATE
     Dosage: 8 MG, ONCE; STRENGHT: 5 MG/ML
     Route: 042
     Dates: start: 20160630, end: 20160630
  9. LASTET [Concomitant]
     Active Substance: ETOPOSIDE
     Indication: LUNG NEOPLASM MALIGNANT
     Dosage: 130.5 MG, ONCE, STRENGHT: 100MG/5ML
     Route: 042
     Dates: start: 20160608, end: 20160610
  10. DEXAMETHASONE SODIUM PHOSPHATE. [Concomitant]
     Active Substance: DEXAMETHASONE SODIUM PHOSPHATE
     Dosage: 8 MG, ONCE; STRENGHT: 5 MG/ML
     Route: 042
     Dates: start: 20160702, end: 20160702
  11. DEXAMETHASONE. [Concomitant]
     Active Substance: DEXAMETHASONE
     Indication: PROPHYLAXIS
     Dosage: 8 MG, QD
     Route: 048
     Dates: start: 20160702, end: 20160705
  12. ALOXI [Concomitant]
     Active Substance: PALONOSETRON HYDROCHLORIDE
     Dosage: 5 ML, ONCE
     Route: 042
     Dates: start: 20160629, end: 20160629
  13. LASTET [Concomitant]
     Active Substance: ETOPOSIDE
     Dosage: 128.3 MG, ONCE, STRENGHT: 100MG/5ML
     Route: 042
     Dates: start: 20160629, end: 20160629
  14. DEXAMETHASONE SODIUM PHOSPHATE. [Concomitant]
     Active Substance: DEXAMETHASONE SODIUM PHOSPHATE
     Indication: PREMEDICATION
     Dosage: 12 MG, ONCE; STRENGHT: 5 MG/ML
     Route: 042
     Dates: start: 20160608, end: 20160608
  15. DEXAMETHASONE SODIUM PHOSPHATE. [Concomitant]
     Active Substance: DEXAMETHASONE SODIUM PHOSPHATE
     Dosage: 8 MG, BID; STRENGHT: 5 MG/ML
     Route: 042
     Dates: start: 20160701, end: 20160701
  16. DEXAMETHASONE SODIUM PHOSPHATE. [Concomitant]
     Active Substance: DEXAMETHASONE SODIUM PHOSPHATE
     Dosage: 8 MG, ONCE; STRENGHT: 5 MG/ML
     Route: 042
     Dates: start: 20160721, end: 20160721
  17. EMEND (FOSAPREPITANT DIMEGLUMINE) [Suspect]
     Active Substance: FOSAPREPITANT DIMEGLUMINE
     Dosage: 150 MG, ONCE
     Route: 042
     Dates: start: 20160720, end: 20160720
  18. CISPLAN [Concomitant]
     Active Substance: CISPLATIN
     Dosage: 97 MG, ONCE, STRENGHT: 50MG/100ML
     Route: 042
     Dates: start: 20160720, end: 20160720
  19. ALOXI [Concomitant]
     Active Substance: PALONOSETRON HYDROCHLORIDE
     Indication: PREMEDICATION
     Dosage: 5 ML, ONCE
     Route: 042
     Dates: start: 20160608, end: 20160608
  20. DEXAMETHASONE SODIUM PHOSPHATE. [Concomitant]
     Active Substance: DEXAMETHASONE SODIUM PHOSPHATE
     Dosage: 8 MG, BID; STRENGHT: 5 MG/ML
     Route: 042
     Dates: start: 20160610, end: 20160610
  21. CISPLAN [Concomitant]
     Active Substance: CISPLATIN
     Indication: LUNG NEOPLASM MALIGNANT
     Dosage: 97.8 MG, ONCE, STRENGHT: 50MG/100ML
     Route: 042
     Dates: start: 20160608, end: 20160608
  22. LASTET [Concomitant]
     Active Substance: ETOPOSIDE
     Dosage: 129 MG, ONCE, STRENGHT: 100MG/5ML
     Route: 042
     Dates: start: 20160720, end: 20160722
  23. DEXAMETHASONE SODIUM PHOSPHATE. [Concomitant]
     Active Substance: DEXAMETHASONE SODIUM PHOSPHATE
     Dosage: 8 MG, ONCE; STRENGHT: 5 MG/ML
     Route: 042
     Dates: start: 20160609, end: 20160609
  24. DEXAMETHASONE SODIUM PHOSPHATE. [Concomitant]
     Active Substance: DEXAMETHASONE SODIUM PHOSPHATE
     Dosage: 8 MG, ONCE; STRENGHT: 5 MG/ML
     Route: 042
     Dates: start: 20160722, end: 20160722
  25. ALOXI [Concomitant]
     Active Substance: PALONOSETRON HYDROCHLORIDE
     Dosage: 5 ML, ONCE
     Route: 042
     Dates: start: 20160720, end: 20160720

REACTIONS (1)
  - Pneumonia [Recovered/Resolved]

NARRATIVE: CASE EVENT DATE: 20160729
